FAERS Safety Report 12405469 (Version 1)
Quarter: 2016Q2

REPORT INFORMATION
  Report Type: Spontaneous
  Country: US (occurrence: None)
  Receive Date: 20160525
  Receipt Date: 20160525
  Transmission Date: 20160815
  Serious: Yes (Hospitalization)
  Sender: FDA-Public Use
  Company Number: None

PATIENT
  Age: 45 Year
  Sex: Female
  Weight: 68.04 kg

DRUGS (10)
  1. AMBIEN [Concomitant]
     Active Substance: ZOLPIDEM TARTRATE
  2. NASCOBAL [Suspect]
     Active Substance: CYANOCOBALAMIN
     Indication: DRUG THERAPY
     Route: 055
     Dates: start: 20160519, end: 20160519
  3. PRAVASTATIN [Concomitant]
     Active Substance: PRAVASTATIN\PRAVASTATIN SODIUM
  4. CLONAZEPAM. [Concomitant]
     Active Substance: CLONAZEPAM
  5. NIACIN. [Concomitant]
     Active Substance: NIACIN
  6. PROBIOTIC [Concomitant]
     Active Substance: PROBIOTICS NOS
  7. VIIBRYD [Concomitant]
     Active Substance: VILAZODONE HYDROCHLORIDE
  8. BIOTIN [Concomitant]
     Active Substance: BIOTIN
  9. BIO IDENTICAL HORMONES FOR FULL HYSTERECTOMY [Concomitant]
  10. VITAMIN D3 [Concomitant]
     Active Substance: CHOLECALCIFEROL

REACTIONS (12)
  - Erythema [None]
  - Ear pruritus [None]
  - Pharyngeal oedema [None]
  - Pruritus generalised [None]
  - Angina pectoris [None]
  - Eye irritation [None]
  - Eye swelling [None]
  - Pruritus [None]
  - Swollen tongue [None]
  - Periorbital oedema [None]
  - Vomiting [None]
  - Throat irritation [None]

NARRATIVE: CASE EVENT DATE: 20160519
